FAERS Safety Report 5750746-8 (Version None)
Quarter: 2008Q2

REPORT INFORMATION
  Report Type: 
  Country: None (occurrence: None)
  Receive Date: 20080528
  Receipt Date: 20080520
  Transmission Date: 20081010
  Serious: Yes (Other)
  Sender: FDA-Public Use
  Company Number: DE-JNJFOC-20080504182

PATIENT
  Age: 58 Year
  Sex: Male

DRUGS (2)
  1. REMICADE [Suspect]
     Indication: INFLAMMATORY BOWEL DISEASE
     Route: 042
  2. ADALIMUMAB [Suspect]
     Indication: INFLAMMATORY BOWEL DISEASE

REACTIONS (1)
  - HEPATOSPLENIC T-CELL LYMPHOMA [None]
